FAERS Safety Report 6634858-2 (Version None)
Quarter: 2010Q1

REPORT INFORMATION
  Report Type: 
  Country: None (occurrence: None)
  Receive Date: 20100315
  Receipt Date: 20100303
  Transmission Date: 20100710
  Serious: Yes (Death, Hospitalization)
  Sender: FDA-Public Use
  Company Number: US-PFIZER INC-2010020305

PATIENT
  Sex: Female
  Weight: 54.9 kg

DRUGS (9)
  1. SUTENT [Suspect]
     Indication: ANAPLASTIC ASTROCYTOMA
     Dosage: 25 MG, 1X/DAY (1 CAPSULE Q EVE)+ 12.5 MG 1 CAPSULE Q EVE
     Dates: start: 20091211, end: 20100206
  2. KEPPRA [Concomitant]
     Dosage: 1500 MG, 2X/DAY
  3. LEXAPRO [Concomitant]
     Dosage: 20 MG, 1X/DAY
  4. DECADRON [Concomitant]
     Dosage: 4 MG, 2X/DAY
  5. POTASSIUM CITRATE [Concomitant]
     Dosage: TWICE DAILY
  6. PROTONIX [Concomitant]
     Dosage: 40 MG, 2X/DAY
  7. SYNTHROID [Concomitant]
     Dosage: 75 UG, 1X/DAY
  8. AMBIEN [Concomitant]
     Dosage: 6.25 MG, AT BEDTIME
  9. DEPAKOTE [Concomitant]
     Dosage: 250/250/500 ONCE DAILY

REACTIONS (2)
  - DEATH [None]
  - PAIN IN EXTREMITY [None]
